FAERS Safety Report 10163629 (Version 1)
Quarter: 2014Q2

REPORT INFORMATION
  Report Type: Spontaneous
  Country: GR (occurrence: GR)
  Receive Date: 20140509
  Receipt Date: 20140509
  Transmission Date: 20141212
  Serious: Yes (Other)
  Sender: FDA-Public Use
  Company Number: GR-BRISTOL-MYERS SQUIBB COMPANY-20714887

PATIENT
  Age: 37 Year
  Sex: Female

DRUGS (1)
  1. GLUCOPHAGE TABS 850 MG [Suspect]
     Indication: TYPE 2 DIABETES MELLITUS
     Dosage: ONE IN MORNING AND ONE IN NIGHT
     Route: 048

REACTIONS (2)
  - Pyelonephritis [Unknown]
  - Urinary tract infection [Unknown]
